FAERS Safety Report 17471835 (Version 1)
Quarter: 2020Q1

REPORT INFORMATION
  Report Type: Spontaneous
  Country: US (occurrence: US)
  Receive Date: 20200228
  Receipt Date: 20200228
  Transmission Date: 20200409
  Serious: Yes (Death, Hospitalization, Other)
  Sender: FDA-Public Use
  Company Number: US-009507513-2002USA010821

PATIENT
  Age: 67 Year
  Sex: Female

DRUGS (11)
  1. JANUVIA [Suspect]
     Active Substance: SITAGLIPTIN PHOSPHATE
     Indication: TYPE 2 DIABETES MELLITUS
     Dosage: 1 DOSAGE FORM, QD
     Route: 048
     Dates: end: 20200218
  2. NOVOLOG [Concomitant]
     Active Substance: INSULIN ASPART
  3. VALGANCICLOVIR HYDROCHLORIDE. [Concomitant]
     Active Substance: VALGANCICLOVIR HYDROCHLORIDE
  4. TACROLIMUS. [Concomitant]
     Active Substance: TACROLIMUS
  5. MIRTAZAPINE. [Concomitant]
     Active Substance: MIRTAZAPINE
  6. AMLODIPINE [Concomitant]
     Active Substance: AMLODIPINE BESYLATE
  7. NEPHRON [Concomitant]
  8. ONDANSETRON [Concomitant]
     Active Substance: ONDANSETRON
  9. METOPROLOL SUCCINATE. [Concomitant]
     Active Substance: METOPROLOL SUCCINATE
  10. ALBUTEROL SULFATE. [Concomitant]
     Active Substance: ALBUTEROL SULFATE
  11. LORAZEPAM. [Concomitant]
     Active Substance: LORAZEPAM

REACTIONS (2)
  - Acute respiratory failure [Fatal]
  - Adverse event [Unknown]

NARRATIVE: CASE EVENT DATE: 20200204
